FAERS Safety Report 21217198 (Version 1)
Quarter: 2022Q3

REPORT INFORMATION
  Report Type: Spontaneous
  Country: US (occurrence: None)
  Receive Date: 20220815
  Receipt Date: 20220815
  Transmission Date: 20221027
  Serious: No
  Sender: FDA-Public Use
  Company Number: None

PATIENT
  Sex: Female

DRUGS (3)
  1. RINVOQ [Suspect]
     Active Substance: UPADACITINIB
     Indication: Rheumatoid arthritis
     Dosage: FREQUENCY : DAILY;?
     Route: 048
     Dates: start: 202108
  2. RINVOQ [Suspect]
     Active Substance: UPADACITINIB
     Indication: Multiple sclerosis
  3. RINVOQ [Suspect]
     Active Substance: UPADACITINIB

REACTIONS (5)
  - Spinal fusion surgery [None]
  - Hip surgery [None]
  - Bursa removal [None]
  - Bone lesion excision [None]
  - Therapy cessation [None]
